FAERS Safety Report 7705912-9 (Version None)
Quarter: 2011Q3

REPORT INFORMATION
  Report Type: 
  Country: None (occurrence: None)
  Receive Date: 20110818
  Receipt Date: 20110804
  Transmission Date: 20111222
  Serious: Yes (Other)
  Sender: FDA-Public Use
  Company Number: 2009EN000028

PATIENT
  Age: 7 Month
  Sex: Male

DRUGS (1)
  1. ADAGEN [Suspect]
     Indication: COMBINED IMMUNODEFICIENCY
     Dosage: 44 IU/KG; QW; IM
     Route: 030
     Dates: start: 20041001, end: 20051024

REACTIONS (6)
  - STAPHYLOCOCCAL INFECTION [None]
  - GASTROENTERITIS VIRAL [None]
  - GENITAL CANDIDIASIS [None]
  - UPPER RESPIRATORY TRACT INFECTION [None]
  - AUTOIMMUNE HEPATITIS [None]
  - PSYCHOMOTOR SKILLS IMPAIRED [None]
